FAERS Safety Report 7514649-0 (Version None)
Quarter: 2011Q2

REPORT INFORMATION
  Report Type: 
  Country: None (occurrence: None)
  Receive Date: 20110601
  Receipt Date: 20110519
  Transmission Date: 20111010
  Serious: Yes (Life-Threatening, Hospitalization)
  Sender: FDA-Public Use
  Company Number: US-BAYER-201031681NA

PATIENT
  Age: 41 Year
  Sex: Female
  Weight: 58.957 kg

DRUGS (11)
  1. YAZ [Suspect]
     Indication: ORAL CONTRACEPTION
     Dosage: UNK
     Route: 048
     Dates: start: 20050101, end: 20090101
  2. LEVONORGESTREL [Concomitant]
     Dosage: UNK
     Dates: start: 20090824, end: 20100102
  3. LO/OVRAL [Concomitant]
     Dosage: UNK
     Dates: start: 20090824, end: 20100120
  4. TIZANIDINE HCL [Concomitant]
  5. HYDROXYZINE [Concomitant]
  6. ZANAFLEX [Concomitant]
     Dosage: 4 MG, BID
  7. ATARAX [Concomitant]
     Dosage: 25 UNK, UNK
  8. DEMEROL [Concomitant]
     Dosage: 50 MG, PRN
  9. YASMIN [Suspect]
     Indication: ORAL CONTRACEPTION
     Dosage: UNK
     Route: 048
     Dates: start: 20050101, end: 20090101
  10. MEPERITAB [Concomitant]
  11. TRAMADOL HCL [Concomitant]

REACTIONS (2)
  - CHOLECYSTITIS CHRONIC [None]
  - GALLBLADDER DISORDER [None]
